FAERS Safety Report 6745724-6 (Version None)
Quarter: 2010Q2

REPORT INFORMATION
  Report Type: 
  Country: None (occurrence: None)
  Receive Date: 20100528
  Receipt Date: 20100519
  Transmission Date: 20101027
  Serious: Yes (Hospitalization)
  Sender: FDA-Public Use
  Company Number: US-KINGPHARMUSA00001-K201000632

PATIENT
  Sex: Female
  Weight: 76.19 kg

DRUGS (3)
  1. LEVOXYL [Suspect]
     Indication: BASEDOW'S DISEASE
     Dosage: 200 MCG, QD
     Route: 048
  2. LEVOXYL [Suspect]
     Dosage: 50 MCG, BID
     Dates: start: 20100420, end: 20100516
  3. LISINOPRIL [Concomitant]

REACTIONS (5)
  - FIBROMUSCULAR DYSPLASIA [None]
  - HYPERTENSION [None]
  - PRURITUS [None]
  - RASH GENERALISED [None]
  - WEIGHT INCREASED [None]
